FAERS Safety Report 18591511 (Version 51)
Quarter: 2025Q2

REPORT INFORMATION
  Report Type: Report from Study
  Country: US (occurrence: US)
  Receive Date: 20201208
  Receipt Date: 20250516
  Transmission Date: 20250717
  Serious: Yes (Hospitalization, Other)
  Sender: TAKEDA
  Company Number: US-TAKEDA-2020TUS053150

PATIENT
  Age: 85 Year
  Sex: Female
  Weight: 81 kg

DRUGS (54)
  1. HUMAN IMMUNOGLOBULIN G [Suspect]
     Active Substance: HUMAN IMMUNOGLOBULIN G
     Indication: Myasthenia gravis
  2. HUMAN IMMUNOGLOBULIN G [Suspect]
     Active Substance: HUMAN IMMUNOGLOBULIN G
  3. HUMAN IMMUNOGLOBULIN G [Suspect]
     Active Substance: HUMAN IMMUNOGLOBULIN G
     Dosage: 30 GRAM, Q5WEEKS
     Dates: start: 20201130
  4. HUMAN IMMUNOGLOBULIN G [Suspect]
     Active Substance: HUMAN IMMUNOGLOBULIN G
  5. HUMAN IMMUNOGLOBULIN G [Suspect]
     Active Substance: HUMAN IMMUNOGLOBULIN G
     Dosage: 30 GRAM, Q2WEEKS
     Dates: start: 20201228
  6. HUMAN IMMUNOGLOBULIN G [Suspect]
     Active Substance: HUMAN IMMUNOGLOBULIN G
  7. HUMAN IMMUNOGLOBULIN G [Suspect]
     Active Substance: HUMAN IMMUNOGLOBULIN G
  8. HUMAN IMMUNOGLOBULIN G [Suspect]
     Active Substance: HUMAN IMMUNOGLOBULIN G
     Dosage: 30 GRAM, Q3WEEKS
  9. HUMAN IMMUNOGLOBULIN G [Suspect]
     Active Substance: HUMAN IMMUNOGLOBULIN G
     Dosage: 30 GRAM, Q2WEEKS
  10. HUMAN IMMUNOGLOBULIN G [Suspect]
     Active Substance: HUMAN IMMUNOGLOBULIN G
     Dosage: 30 GRAM, Q2WEEKS
  11. SOLIRIS [Suspect]
     Active Substance: ECULIZUMAB
     Indication: Product used for unknown indication
  12. FUROSEMIDE [Concomitant]
     Active Substance: FUROSEMIDE
  13. CYANOCOBALAMIN [Concomitant]
     Active Substance: CYANOCOBALAMIN
  14. ALBUTEROL SULFATE [Concomitant]
     Active Substance: ALBUTEROL SULFATE
  15. BUDESONIDE [Concomitant]
     Active Substance: BUDESONIDE
  16. ATROVENT HFA [Concomitant]
     Active Substance: IPRATROPIUM BROMIDE
  17. EPINEPHRINE [Concomitant]
     Active Substance: EPINEPHRINE
  18. SODIUM CHLORIDE [Concomitant]
     Active Substance: SODIUM CHLORIDE
  19. VITAMIN C [Concomitant]
     Active Substance: ASCORBIC ACID
  20. FLUTICASONE PROPIONATE [Concomitant]
     Active Substance: FLUTICASONE PROPIONATE
  21. PYRIDOSTIGMINE BROMIDE [Concomitant]
     Active Substance: PYRIDOSTIGMINE BROMIDE
  22. IRON [Concomitant]
     Active Substance: IRON
  23. PREDNISONE [Concomitant]
     Active Substance: PREDNISONE
  24. POTASSIUM ACETATE [Concomitant]
     Active Substance: POTASSIUM ACETATE
  25. ACETAMINOPHEN [Concomitant]
     Active Substance: ACETAMINOPHEN
  26. OXYGEN [Concomitant]
     Active Substance: OXYGEN
  27. TIZANIDINE HYDROCHLORIDE [Concomitant]
     Active Substance: TIZANIDINE HYDROCHLORIDE
  28. ZOFRAN [Concomitant]
     Active Substance: ONDANSETRON HYDROCHLORIDE
  29. LIDOCAINE [Concomitant]
     Active Substance: LIDOCAINE
  30. SIMVASTATIN [Concomitant]
     Active Substance: SIMVASTATIN
  31. ALPRAZOLAM [Concomitant]
     Active Substance: ALPRAZOLAM
  32. PROMETHAZINE HYDROCHLORIDE [Concomitant]
     Active Substance: PROMETHAZINE HYDROCHLORIDE
  33. ALBUTEROL SULFATE [Concomitant]
     Active Substance: ALBUTEROL SULFATE
  34. SODIUM CHLORIDE [Concomitant]
     Active Substance: SODIUM CHLORIDE
  35. HEPARIN [Concomitant]
     Active Substance: HEPARIN SODIUM
  36. DULERA [Concomitant]
     Active Substance: FORMOTEROL FUMARATE DIHYDRATE\MOMETASONE FUROATE
  37. TUSSI PRES-B [Concomitant]
  38. SERTRALINE HYDROCHLORIDE [Concomitant]
     Active Substance: SERTRALINE HYDROCHLORIDE
  39. HYDROCHLOROTHIAZIDE\TRIAMTERENE [Concomitant]
     Active Substance: HYDROCHLOROTHIAZIDE\TRIAMTERENE
  40. SINGULAIR [Concomitant]
     Active Substance: MONTELUKAST SODIUM
  41. VENTOLIN [Concomitant]
     Active Substance: ALBUTEROL SULFATE
  42. ALKA-SELTZER [Concomitant]
     Active Substance: ANHYDROUS CITRIC ACID\ASPIRIN\SODIUM BICARBONATE
  43. Lmx [Concomitant]
  44. POTASSIUM CHLORIDE [Concomitant]
     Active Substance: POTASSIUM CHLORIDE
  45. PROTONIX [Concomitant]
     Active Substance: PANTOPRAZOLE SODIUM
  46. TRELEGY ELLIPTA [Concomitant]
     Active Substance: FLUTICASONE FUROATE\UMECLIDINIUM BROMIDE\VILANTEROL TRIFENATATE
  47. ZOLOFT [Concomitant]
     Active Substance: SERTRALINE HYDROCHLORIDE
  48. ELIQUIS [Concomitant]
     Active Substance: APIXABAN
  49. MELATONIN [Concomitant]
     Active Substance: MELATONIN
  50. FERROUS SULFATE [Concomitant]
     Active Substance: FERROUS SULFATE
  51. AZO URINARY TRACT HEALTH [Concomitant]
     Active Substance: PHENAZOPYRIDINE HYDROCHLORIDE
  52. LIDOCAINE\PRILOCAINE [Concomitant]
     Active Substance: LIDOCAINE\PRILOCAINE
  53. VOLTAREN ARTHRITIS PAIN [Concomitant]
     Active Substance: DICLOFENAC SODIUM
  54. MUCINEX FAST-MAX COLD AND FLU [Concomitant]
     Active Substance: ACETAMINOPHEN\DEXTROMETHORPHAN HYDROBROMIDE\GUAIFENESIN\PHENYLEPHRINE HYDROCHLORIDE

REACTIONS (75)
  - Hernia [Unknown]
  - Blood iron decreased [Unknown]
  - Gastric haemorrhage [Unknown]
  - Gastrointestinal haemorrhage [Unknown]
  - Haemoglobin decreased [Unknown]
  - Infection [Unknown]
  - Respiratory failure [Unknown]
  - Myasthenia gravis [Unknown]
  - Diabetes mellitus [Unknown]
  - Aspiration [Unknown]
  - Pneumonia [Recovered/Resolved]
  - Atrial fibrillation [Unknown]
  - Sepsis [Unknown]
  - Haematocrit decreased [Unknown]
  - Dysphonia [Unknown]
  - Product use in unapproved indication [Unknown]
  - Product dose omission issue [Unknown]
  - Incorrect product administration duration [Unknown]
  - Product availability issue [Unknown]
  - Inappropriate schedule of product administration [Unknown]
  - Infusion related reaction [Recovered/Resolved]
  - Blood pressure decreased [Recovered/Resolved]
  - Pharyngeal swelling [Recovered/Resolved]
  - Stridor [Recovered/Resolved]
  - Logorrhoea [Unknown]
  - Bronchitis [Unknown]
  - Weight abnormal [Unknown]
  - Transferrin saturation decreased [Unknown]
  - Blood potassium increased [Unknown]
  - Urinary tract infection [Unknown]
  - Blood disorder [Unknown]
  - Eye disorder [Unknown]
  - Oxygen consumption decreased [Unknown]
  - Stress [Unknown]
  - Weight increased [Unknown]
  - Toothache [Unknown]
  - White blood cell count increased [Unknown]
  - Fluid retention [Unknown]
  - Insurance issue [Unknown]
  - Productive cough [Unknown]
  - Respiratory tract infection [Unknown]
  - Atelectasis [Unknown]
  - Speech disorder [Unknown]
  - Neck mass [Unknown]
  - Dysphonia [Unknown]
  - Product distribution issue [Unknown]
  - Poor venous access [Unknown]
  - Pancreatic mass [Unknown]
  - Hepatic mass [Unknown]
  - Pulmonary mass [Unknown]
  - Musculoskeletal stiffness [Unknown]
  - Photophobia [Unknown]
  - Abdominal discomfort [Unknown]
  - Upper respiratory tract infection [Unknown]
  - Infusion site discolouration [Unknown]
  - Sinusitis [Unknown]
  - Pharyngitis [Unknown]
  - Heart rate increased [Unknown]
  - Asthenia [Unknown]
  - Cold sweat [Unknown]
  - Lethargy [Unknown]
  - Anaemia [Unknown]
  - Cough [Unknown]
  - Malaise [Recovered/Resolved]
  - Chest discomfort [Unknown]
  - Back pain [Unknown]
  - Oedema [Unknown]
  - Vomiting [Unknown]
  - Pyrexia [Unknown]
  - Chills [Unknown]
  - Diarrhoea [Unknown]
  - Dizziness [Unknown]
  - Fatigue [Unknown]
  - Nausea [Unknown]
  - Hyperhidrosis [Unknown]

NARRATIVE: CASE EVENT DATE: 20211109
